FAERS Safety Report 6111048-3 (Version None)
Quarter: 2009Q1

REPORT INFORMATION
  Report Type: 
  Country: None (occurrence: None)
  Receive Date: 20090311
  Receipt Date: 20080328
  Transmission Date: 20090719
  Serious: No
  Sender: FDA-Public Use
  Company Number: US-KINGPHARMUSA00001-K200800372

PATIENT
  Age: 45 Year
  Sex: Female

DRUGS (4)
  1. ALTACE [Suspect]
     Indication: HYPERTENSION
     Dosage: 2.5 MG, QD
     Route: 048
     Dates: start: 20070101, end: 20080101
  2. ALTACE [Suspect]
     Dosage: 2.5 MG, 2 CAPSULES QD
     Route: 048
     Dates: start: 20080201, end: 20080327
  3. ALTACE [Suspect]
     Dosage: 5 MG, QD
     Route: 048
     Dates: start: 20080327
  4. EXCEDRIN    /00214201/ [Concomitant]
     Indication: BACK PAIN
     Dosage: ONE TABLET, QD

REACTIONS (4)
  - BLOOD PRESSURE INCREASED [None]
  - HYPERHIDROSIS [None]
  - PALPITATIONS [None]
  - PRURITUS [None]
